FAERS Safety Report 9409880 (Version 1)
Quarter: 2013Q3

REPORT INFORMATION
  Report Type: Spontaneous
  Country: US (occurrence: US)
  Receive Date: 20130719
  Receipt Date: 20130719
  Transmission Date: 20140515
  Serious: Yes (Other)
  Sender: FDA-Public Use
  Company Number: US-PFIZER INC-2013211946

PATIENT
  Age: 59 Year
  Sex: Female
  Weight: 65.76 kg

DRUGS (3)
  1. LYRICA [Suspect]
     Indication: OCCIPITAL NEURALGIA
     Dosage: 50 MG, 2X/DAY
  2. TYLENOL [Concomitant]
     Indication: PAIN
     Dosage: 500 MG, AS NEEDED
  3. TYLENOL [Concomitant]
     Indication: PYREXIA

REACTIONS (1)
  - Pneumonia [Recovering/Resolving]
